FAERS Safety Report 10823307 (Version 1)
Quarter: 2015Q1

REPORT INFORMATION
  Report Type: Spontaneous
  Country: US (occurrence: None)
  Receive Date: 20150218
  Receipt Date: 20150218
  Transmission Date: 20150721
  Serious: Yes (Other)
  Sender: FDA-Public Use
  Company Number: None

PATIENT
  Age: 70 Year
  Sex: Male
  Weight: 115 kg

DRUGS (1)
  1. THERACYS [Suspect]
     Active Substance: BACILLUS CALMETTE-GUERIN SUBSTRAIN CONNAUGHT LIVE ANTIGEN
     Indication: BLADDER CANCER
     Dosage: 1 DOSE, WEEKLY, INTRAVESICULAR
     Dates: start: 20111001, end: 20131001

REACTIONS (2)
  - Mycobacterium tuberculosis complex test positive [None]
  - Cystitis [None]

NARRATIVE: CASE EVENT DATE: 20150122
